FAERS Safety Report 9549432 (Version 1)
Quarter: 2013Q3

REPORT INFORMATION
  Report Type: Spontaneous
  Country: FR (occurrence: None)
  Receive Date: 20130919
  Receipt Date: 20130919
  Transmission Date: 20140515
  Serious: Yes (Other)
  Sender: FDA-Public Use
  Company Number: 1887865

PATIENT
  Age: 71 Year
  Sex: Male

DRUGS (11)
  1. OXALIPLATIN [Suspect]
     Indication: CHOLANGIOCARCINOMA
     Route: 042
     Dates: start: 20130222, end: 20130628
  2. BROMAZEPAM [Concomitant]
  3. GEMCITABINE [Concomitant]
  4. FLUTICASONE W/SALMETEROL [Concomitant]
  5. TIOTROPIUM BROMIDE [Concomitant]
  6. SALBUTAMOL [Concomitant]
  7. VALSARTAN [Concomitant]
  8. ZOLPIDEM TARTRATE [Concomitant]
  9. OMEPRAZZOLE [Concomitant]
  10. FENOFIBRATE [Concomitant]
  11. FINASTERIDE [Concomitant]

REACTIONS (3)
  - Erythema [None]
  - Papule [None]
  - Pruritus generalised [None]
